FAERS Safety Report 4635650-0 (Version None)
Quarter: 2005Q2

REPORT INFORMATION
  Report Type: 
  Country: None (occurrence: None)
  Receive Date: 20050414
  Receipt Date: 20050328
  Transmission Date: 20051028
  Serious: Yes (Death)
  Sender: FDA-Public Use
  Company Number: 10705

PATIENT

DRUGS (5)
  1. METHOTREXATE [Suspect]
     Indication: CENTRAL NERVOUS SYSTEM LYMPHOMA
     Dosage: 1.5 G/M2 PER_CYCLE IV
     Route: 042
  2. DEXAMETHASONE [Suspect]
     Indication: CENTRAL NERVOUS SYSTEM LYMPHOMA
     Dosage: 8 MG TID PO
     Route: 048
  3. CARMUSTINE [Suspect]
     Indication: CENTRAL NERVOUS SYSTEM LYMPHOMA
     Dosage: 80 MG/M2 PER_CYCLE IV
     Route: 042
  4. PROCARBAZINE [Suspect]
     Indication: CENTRAL NERVOUS SYSTEM LYMPHOMA
     Dosage: 800 MG/M2 PER_CYCLE PO
     Route: 048
  5. LEUCOVORIN CALCIUM [Concomitant]

REACTIONS (2)
  - DRUG TOXICITY [None]
  - PNEUMONIA PRIMARY ATYPICAL [None]
